FAERS Safety Report 26117459 (Version 2)
Quarter: 2025Q4

REPORT INFORMATION
  Report Type: Spontaneous
  Country: US (occurrence: US)
  Receive Date: 20251203
  Receipt Date: 20251216
  Transmission Date: 20260118
  Serious: No
  Sender: AGIOS PHARMACEUTICALS
  Company Number: US-AGIOS-2511US04578

PATIENT
  Age: 27 Year
  Sex: Female

DRUGS (1)
  1. PYRUKYND [Suspect]
     Active Substance: MITAPIVAT
     Indication: Pyruvate kinase deficiency anaemia
     Dosage: 5 MILLIGRAM, QD
     Route: 048
     Dates: start: 20251121

REACTIONS (2)
  - Fatigue [Not Recovered/Not Resolved]
  - Increased need for sleep [Not Recovered/Not Resolved]

NARRATIVE: CASE EVENT DATE: 20251123
